FAERS Safety Report 24307046 (Version 1)
Quarter: 2024Q3

REPORT INFORMATION
  Report Type: Spontaneous
  Country: GB (occurrence: GB)
  Receive Date: 20240911
  Receipt Date: 20240911
  Transmission Date: 20241017
  Serious: Yes (Other)
  Sender: MYLAN
  Company Number: GB-MYLANLABS-2024M1079584

PATIENT
  Age: 61 Year
  Sex: Female
  Weight: 90 kg

DRUGS (17)
  1. CLOZARIL [Suspect]
     Active Substance: CLOZAPINE
     Indication: Schizophrenia
     Dosage: 200 MILLIGRAM, TID (75 MILLIGRAM EVERY MORNING, 50 MILLIGRAM AT TEATIME, 75 MILLIGRAM AT BEDTIME)
     Route: 048
     Dates: start: 20010226
  2. ESCITALOPRAM [Concomitant]
     Active Substance: ESCITALOPRAM OXALATE
     Indication: Anxiety
     Dosage: 20 MILLIGRAM, QD
     Route: 048
     Dates: start: 20150313
  3. CYCLOPHOSPHAMIDE\DOXORUBICIN\PREDNISONE\RITUXIMAB\VINCRISTINE [Concomitant]
     Active Substance: CYCLOPHOSPHAMIDE\DOXORUBICIN\PREDNISONE\RITUXIMAB\VINCRISTINE
     Indication: B-cell lymphoma
     Dosage: UNK, Q21D(R-CHOP 21, FOR 6 CYCLES)
     Route: 048
  4. CYCLOPHOSPHAMIDE\DOXORUBICIN\PREDNISONE\RITUXIMAB\VINCRISTINE [Concomitant]
     Active Substance: CYCLOPHOSPHAMIDE\DOXORUBICIN\PREDNISONE\RITUXIMAB\VINCRISTINE
     Dosage: UNK, Q21D
     Route: 042
  5. PREDNISOLONE [Concomitant]
     Active Substance: PREDNISOLONE
     Indication: B-cell lymphoma
     Dosage: 100 MILLIGRAM, ONCE
     Route: 048
     Dates: start: 20240903, end: 20240903
  6. CHLORPHENIRAMINE MALEATE [Concomitant]
     Active Substance: CHLORPHENIRAMINE MALEATE
     Indication: B-cell lymphoma
     Dosage: 8 MILLIGRAM, ONCE
     Route: 048
     Dates: start: 20240903, end: 20240903
  7. ACETAMINOPHEN [Concomitant]
     Active Substance: ACETAMINOPHEN
     Indication: B-cell lymphoma
     Dosage: 1 GRAM, ONCE
     Route: 048
     Dates: start: 20240903, end: 20240903
  8. ONDANSETRON [Concomitant]
     Active Substance: ONDANSETRON
     Indication: B-cell lymphoma
     Dosage: 8 MILLIGRAM, ONCE
     Route: 048
     Dates: start: 20240903, end: 20240903
  9. RITUXIMAB [Concomitant]
     Active Substance: RITUXIMAB
     Indication: B-cell lymphoma
     Dosage: 700 MILLIGRAM, ONCE
     Route: 042
     Dates: start: 20240903, end: 20240903
  10. DOXORUBICIN [Concomitant]
     Active Substance: DOXORUBICIN
     Indication: B-cell lymphoma
     Dosage: 100 MILLIGRAM, ONCE
     Route: 042
     Dates: start: 20240903, end: 20240903
  11. CYCLOPHOSPHAMIDE [Concomitant]
     Active Substance: CYCLOPHOSPHAMIDE
     Indication: B-cell lymphoma
     Dosage: 1.5 GRAM, ONCE
     Route: 042
     Dates: start: 20240903, end: 20240903
  12. VINCRISTINE [Concomitant]
     Active Substance: VINCRISTINE
     Indication: B-cell lymphoma
     Dosage: 2 MILLIGRAM, ONCE
     Route: 042
     Dates: start: 20240903, end: 20240903
  13. GRANULOCYTE COLONY-STIMULATING FACTOR NOS [Concomitant]
     Active Substance: GRANULOCYTE COLONY-STIMULATING FACTOR NOS
     Indication: B-cell lymphoma
     Dosage: 263 MICROGRAM, BIWEEKLY (ONCE, ONGOING FOR TWICE A WEEK)
     Route: 058
     Dates: start: 20240903
  14. CALCIUM CARBONATE\CHOLECALCIFEROL [Concomitant]
     Active Substance: CALCIUM CARBONATE\CHOLECALCIFEROL
     Indication: Antibiotic therapy
     Dosage: 880 UNITS/2.5 GRAM, QD (ONCE A DAY)
     Route: 048
     Dates: start: 20240605
  15. DIAZEPAM [Concomitant]
     Active Substance: DIAZEPAM
     Indication: Anxiety
     Dosage: 5 MILLIGRAM, (APPROX ONCE A WEEK)
     Route: 048
     Dates: start: 20150313
  16. LETROZOLE [Concomitant]
     Active Substance: LETROZOLE
     Indication: Breast cancer
     Dosage: UNK
     Route: 048
  17. POLYETHYLENE GLYCOL 3350\POTASSIUM CHLORIDE\SODIUM BICARBONATE\SODIUM [Concomitant]
     Active Substance: POLYETHYLENE GLYCOL 3350\POTASSIUM CHLORIDE\SODIUM BICARBONATE\SODIUM CHLORIDE
     Indication: Antipsychotic therapy
     Dosage: 2 DOSAGE FORM (SACHETS), QD (ONCE A DAY)
     Route: 048
     Dates: start: 20150612

REACTIONS (4)
  - Neutropenia [Recovered/Resolved]
  - White blood cell count decreased [Recovered/Resolved]
  - Eosinophil count decreased [Not Recovered/Not Resolved]
  - Off label use [Unknown]

NARRATIVE: CASE EVENT DATE: 20240819
